FAERS Safety Report 4465123-X (Version None)
Quarter: 2004Q4

REPORT INFORMATION
  Report Type: 
  Country: None (occurrence: None)
  Receive Date: 20041004
  Receipt Date: 20020808
  Transmission Date: 20050328
  Serious: Yes (Other)
  Sender: FDA-Public Use
  Company Number: PHBS2002CL09569

PATIENT
  Age: 41 Year
  Sex: Male

DRUGS (5)
  1. LIORESAL [Suspect]
     Dosage: 1 TABLET/DAY
     Route: 048
     Dates: start: 19980101
  2. LIORESAL [Suspect]
     Dosage: 2 TABLETS/DAY
     Route: 048
  3. LIORESAL [Suspect]
     Dosage: 4 TABLETS/DAY
     Route: 048
  4. DIAZEPAM [Concomitant]
     Route: 065
  5. OMEPRAZOLE [Concomitant]
     Route: 065

REACTIONS (6)
  - ABDOMINAL DISTENSION [None]
  - ABDOMINAL PAIN UPPER [None]
  - CHEST WALL PAIN [None]
  - FATIGUE [None]
  - FLATULENCE [None]
  - HAEMATOCHEZIA [None]
